FAERS Safety Report 18359081 (Version 2)
Quarter: 2020Q4

REPORT INFORMATION
  Report Type: Spontaneous
  Country: US (occurrence: US)
  Receive Date: 20201008
  Receipt Date: 20201106
  Transmission Date: 20210114
  Serious: No
  Sender: FDA-Public Use
  Company Number: US-ASTRAZENECA-2020SF23782

PATIENT
  Sex: Male
  Weight: 140.6 kg

DRUGS (3)
  1. BYDUREON BCISE [Suspect]
     Active Substance: EXENATIDE
     Indication: BLOOD GLUCOSE FLUCTUATION
     Route: 058
     Dates: start: 201912
  2. BYDUREON BCISE [Suspect]
     Active Substance: EXENATIDE
     Indication: WEIGHT ABNORMAL
     Route: 058
     Dates: start: 201912
  3. BYDUREON BCISE [Suspect]
     Active Substance: EXENATIDE
     Indication: BLOOD INSULIN ABNORMAL
     Route: 058
     Dates: start: 201912

REACTIONS (5)
  - Urticaria [Recovering/Resolving]
  - Injection site pruritus [Recovering/Resolving]
  - Wrong technique in device usage process [Unknown]
  - Device leakage [Unknown]
  - Injection site nodule [Recovering/Resolving]
